FAERS Safety Report 10180163 (Version 1)
Quarter: 2014Q2

REPORT INFORMATION
  Report Type: Spontaneous
  Country: TR (occurrence: None)
  Receive Date: 20140515
  Receipt Date: 20140515
  Transmission Date: 20141212
  Serious: Yes (Hospitalization)
  Sender: FDA-Public Use
  Company Number: 2014-TR-005508

PATIENT
  Age: 53 Year
  Sex: Female

DRUGS (2)
  1. CLOZAPINE USP, ODT (CLOZAPINE, USP) TABLET, MG [Suspect]
     Indication: SCHIZOPHRENIA
     Route: 048
  2. ROSUVASTATIN (ROSUVASTATIN CALCIUM) [Concomitant]

REACTIONS (11)
  - Toxicity to various agents [None]
  - Hyponatraemia [None]
  - Urinary incontinence [None]
  - Blood pressure decreased [None]
  - Leukocytosis [None]
  - Thrombocytopenia [None]
  - Procalcitonin increased [None]
  - Atelectasis [None]
  - Ventricular extrasystoles [None]
  - Neuroleptic malignant syndrome [None]
  - Antipsychotic drug level above therapeutic [None]
